FAERS Safety Report 5625437-4 (Version None)
Quarter: 2008Q1

REPORT INFORMATION
  Report Type: 
  Country: None (occurrence: None)
  Receive Date: 20080211
  Receipt Date: 20080205
  Transmission Date: 20080703
  Serious: Yes (Hospitalization)
  Sender: FDA-Public Use
  Company Number: 2008RL000040

PATIENT
  Age: 62 Year
  Sex: Female

DRUGS (5)
  1. LOVAZA [Suspect]
     Indication: BLOOD TRIGLYCERIDES INCREASED
     Dosage: 1 GM; ; PO
     Route: 048
     Dates: start: 20070901, end: 20071101
  2. CARDIZEM [Concomitant]
  3. HYDROCHLOROTHIAZIDE [Concomitant]
  4. LAMICTAL [Concomitant]
  5. ZOMIG [Concomitant]

REACTIONS (1)
  - ANAPHYLACTIC REACTION [None]
